FAERS Safety Report 13457025 (Version 1)
Quarter: 2017Q2

REPORT INFORMATION
  Report Type: Spontaneous
  Country: US (occurrence: US)
  Receive Date: 20170418
  Receipt Date: 20170418
  Transmission Date: 20170830
  Serious: Yes (Hospitalization)
  Sender: FDA-Public Use
  Company Number: None

PATIENT
  Age: 63 Year
  Sex: Male
  Weight: 108.7 kg

DRUGS (1)
  1. CETUXIMAB. [Suspect]
     Active Substance: CETUXIMAB
     Indication: CHOLANGIOCARCINOMA
     Dosage: ?          OTHER FREQUENCY:ONCE;?
     Route: 042

REACTIONS (5)
  - Infusion related reaction [None]
  - Eye movement disorder [None]
  - Pulse absent [None]
  - Erythema [None]
  - Cardio-respiratory arrest [None]

NARRATIVE: CASE EVENT DATE: 20170413
